FAERS Safety Report 5636872-2 (Version None)
Quarter: 2008Q1

REPORT INFORMATION
  Report Type: 
  Country: None (occurrence: None)
  Receive Date: 20080225
  Receipt Date: 20080213
  Transmission Date: 20080703
  Serious: Yes (Death, Other)
  Sender: FDA-Public Use
  Company Number: US-ELI_LILLY_AND_COMPANY-US200802003659

PATIENT
  Age: 25 Year
  Sex: Female

DRUGS (3)
  1. ZYPREXA [Suspect]
     Route: 048
  2. DULOXETINE HYDROCHLORIDE [Suspect]
     Route: 048
  3. LAMOTRIGINE [Concomitant]

REACTIONS (1)
  - COMPLETED SUICIDE [None]
